FAERS Safety Report 18920949 (Version 1)
Quarter: 2021Q1

REPORT INFORMATION
  Report Type: Spontaneous
  Country: US (occurrence: US)
  Receive Date: 20210222
  Receipt Date: 20210222
  Transmission Date: 20210420
  Serious: No
  Sender: FDA-Public Use
  Company Number: US-BAYER-2021-042011

PATIENT
  Age: 86 Year
  Sex: Male

DRUGS (1)
  1. MIRALAX [Suspect]
     Active Substance: POLYETHYLENE GLYCOL 3350
     Indication: GASTROINTESTINAL DISORDER
     Dosage: 17G OF POWDER IN 4?8OZ OF BEVERAGE
     Route: 048
     Dates: start: 202101

REACTIONS (2)
  - Incorrect product administration duration [Unknown]
  - Abdominal discomfort [Unknown]
